FAERS Safety Report 9121497 (Version 2)
Quarter: 2013Q1

REPORT INFORMATION
  Report Type: Spontaneous
  Country: US (occurrence: US)
  Receive Date: 20130227
  Receipt Date: 20130305
  Transmission Date: 20140127
  Serious: No
  Sender: FDA-Public Use
  Company Number: US-009507513-1302USA010956

PATIENT
  Sex: Female

DRUGS (1)
  1. TRUSOPT [Suspect]
     Dosage: 1 DROP INTO THE RIGHT EYE TWICE DAILY
     Route: 047
     Dates: start: 20121208

REACTIONS (3)
  - Incorrect dose administered [Unknown]
  - Product quality issue [Unknown]
  - No adverse event [Unknown]
